FAERS Safety Report 20732102 (Version 1)
Quarter: 2022Q2

REPORT INFORMATION
  Report Type: Spontaneous
  Country: JP (occurrence: JP)
  Receive Date: 20220420
  Receipt Date: 20220420
  Transmission Date: 20220721
  Serious: Yes (Other)
  Sender: FDA-Public Use
  Company Number: JP-PFIZER INC-202200568362

PATIENT
  Sex: Female

DRUGS (1)
  1. AMLODIPINE BESYLATE [Suspect]
     Active Substance: AMLODIPINE BESYLATE
     Dosage: UNK
     Route: 048

REACTIONS (6)
  - Spinal compression fracture [Unknown]
  - White blood cell count decreased [Unknown]
  - Body temperature decreased [Unknown]
  - Fatigue [Unknown]
  - Thirst [Unknown]
  - Intentional dose omission [Unknown]
